FAERS Safety Report 12072334 (Version 1)
Quarter: 2016Q1

REPORT INFORMATION
  Report Type: Spontaneous
  Country: US (occurrence: None)
  Receive Date: 20160211
  Receipt Date: 20160211
  Transmission Date: 20160526
  Serious: No
  Sender: FDA-Public Use
  Company Number: None

PATIENT
  Age: 32 Year
  Sex: Female
  Weight: 58.97 kg

DRUGS (1)
  1. TRIAMCINOLONE [Suspect]
     Active Substance: TRIAMCINOLONE
     Indication: ALOPECIA
     Dates: start: 20160204

REACTIONS (3)
  - Gait disturbance [None]
  - Abdominal pain [None]
  - Appendicitis [None]

NARRATIVE: CASE EVENT DATE: 20160208
